FAERS Safety Report 6730171-3 (Version None)
Quarter: 2010Q2

REPORT INFORMATION
  Report Type: 
  Country: None (occurrence: None)
  Receive Date: 20100513
  Receipt Date: 20100506
  Transmission Date: 20101027
  Serious: Yes (Hospitalization)
  Sender: FDA-Public Use
  Company Number: 99463

PATIENT
  Age: 61 Year
  Sex: Female

DRUGS (1)
  1. LEVOTHYROXINE SODIUM [Suspect]
     Indication: GOITRE
     Dosage: 50 MG/DAY

REACTIONS (16)
  - ACCIDENTAL OVERDOSE [None]
  - ATRIAL FIBRILLATION [None]
  - BLOOD PRESSURE SYSTOLIC INCREASED [None]
  - BLOOD THYROID STIMULATING HORMONE DECREASED [None]
  - CONFUSIONAL STATE [None]
  - DELIRIUM [None]
  - DRUG DISPENSING ERROR [None]
  - HAEMOPERFUSION [None]
  - HEART RATE INCREASED [None]
  - NUCHAL RIGIDITY [None]
  - PYREXIA [None]
  - RESPIRATORY FAILURE [None]
  - STARING [None]
  - STUPOR [None]
  - THYROXINE FREE INCREASED [None]
  - TRI-IODOTHYRONINE INCREASED [None]
